FAERS Safety Report 9031646 (Version 2)
Quarter: 2013Q2

REPORT INFORMATION
  Report Type: Report from Study
  Country: US (occurrence: US)
  Receive Date: 20130124
  Receipt Date: 20130524
  Transmission Date: 20140414
  Serious: Yes (Hospitalization, Other)
  Sender: FDA-Public Use
  Company Number: US-ABBOTT-13P-163-1038143-00

PATIENT
  Age: 50 Year
  Sex: Female
  Weight: 52.21 kg

DRUGS (4)
  1. HUMIRA [Suspect]
     Indication: CROHN^S DISEASE
     Route: 058
     Dates: start: 201104, end: 201201
  2. HUMIRA [Suspect]
     Route: 058
     Dates: start: 201201, end: 201212
  3. HUMIRA [Suspect]
     Route: 058
     Dates: start: 201212
  4. 17 UNKNOWN MEDICATONS [Concomitant]
     Indication: PRODUCT USED FOR UNKNOWN INDICATION

REACTIONS (8)
  - Rectal haemorrhage [Recovered/Resolved]
  - Abdominal pain [Recovered/Resolved]
  - Abdominal pain [Recovering/Resolving]
  - Rectal haemorrhage [Recovering/Resolving]
  - Crohn^s disease [Recovered/Resolved]
  - Cirrhosis alcoholic [Not Recovered/Not Resolved]
  - Varices oesophageal [Not Recovered/Not Resolved]
  - Intestinal varices [Not Recovered/Not Resolved]
